FAERS Safety Report 7593604-9 (Version None)
Quarter: 2011Q3

REPORT INFORMATION
  Report Type: 
  Country: None (occurrence: None)
  Receive Date: 20110706
  Receipt Date: 20110628
  Transmission Date: 20111222
  Serious: Yes (Other)
  Sender: FDA-Public Use
  Company Number: PHHY2011IT54224

PATIENT
  Age: 12 Year
  Sex: Female

DRUGS (4)
  1. IFOSFAMIDE [Suspect]
     Indication: BONE SARCOMA
  2. DOXORUBICIN HCL [Suspect]
     Indication: BONE SARCOMA
     Dosage: UNK
     Dates: start: 20080601
  3. CISPLATIN [Suspect]
     Indication: BONE SARCOMA
     Dosage: UNK
     Dates: start: 20080601
  4. METHOTREXATE [Suspect]
     Indication: BONE SARCOMA
     Dosage: UNK
     Dates: start: 20080601

REACTIONS (2)
  - BONE PAIN [None]
  - TIBIA FRACTURE [None]
